FAERS Safety Report 8241985-5 (Version None)
Quarter: 2012Q1

REPORT INFORMATION
  Report Type: 
  Country: None (occurrence: None)
  Receive Date: 20120329
  Receipt Date: 20120322
  Transmission Date: 20120608
  Serious: No
  Sender: FDA-Public Use
  Company Number: US-BIOGENIDEC-2010BI033615

PATIENT
  Age: 44 Year
  Sex: Female

DRUGS (2)
  1. TYSABRI [Suspect]
     Indication: MULTIPLE SCLEROSIS
     Route: 042
     Dates: start: 20090617
  2. AVONEX [Concomitant]
     Indication: MULTIPLE SCLEROSIS
     Route: 030
     Dates: start: 19971001

REACTIONS (8)
  - POOR VENOUS ACCESS [None]
  - STRESS [None]
  - GAIT DISTURBANCE [None]
  - VITAMIN D DECREASED [None]
  - HEMIPARESIS [None]
  - FATIGUE [None]
  - CENTRAL NERVOUS SYSTEM LESION [None]
  - URINARY TRACT INFECTION [None]
